FAERS Safety Report 24262747 (Version 1)
Quarter: 2024Q3

REPORT INFORMATION
  Report Type: Spontaneous
  Country: GB (occurrence: US)
  Receive Date: 20240829
  Receipt Date: 20240829
  Transmission Date: 20241016
  Serious: Yes (Other)
  Sender: IMMUNOGEN
  Company Number: GB-IMMUNOGEN, INC.-GB-IMGN-24-00464

PATIENT
  Sex: Female

DRUGS (2)
  1. ELAHERE [Suspect]
     Active Substance: MIRVETUXIMAB SORAVTANSINE-GYNX
     Indication: Ovarian cancer
     Dosage: UNK, UNK, 10 ROUNDS
     Route: 065
  2. AVASTIN [Suspect]
     Active Substance: BEVACIZUMAB
     Indication: Ovarian cancer
     Dosage: UNK, UNK
     Route: 065

REACTIONS (2)
  - Cataract [Unknown]
  - Pneumonitis [Unknown]
